FAERS Safety Report 7137842-8 (Version None)
Quarter: 2010Q4

REPORT INFORMATION
  Report Type: 
  Country: None (occurrence: None)
  Receive Date: 20101103
  Receipt Date: 20100813
  Transmission Date: 20110411
  Serious: Yes (Other)
  Sender: FDA-Public Use
  Company Number: US-WYE-H17038810

PATIENT
  Age: 39 Year
  Sex: Female
  Weight: 55.39 kg

DRUGS (4)
  1. EFFEXOR XR [Suspect]
     Indication: MOOD ALTERED
     Dosage: SEE IMAGE
     Route: 048
     Dates: start: 20090201, end: 20091201
  2. EFFEXOR XR [Suspect]
     Indication: MOOD ALTERED
     Dosage: SEE IMAGE
     Route: 048
     Dates: start: 20070101
  3. EFFEXOR XR [Suspect]
     Indication: MOOD ALTERED
     Dosage: SEE IMAGE
     Route: 048
     Dates: start: 20091201
  4. XANAX [Concomitant]

REACTIONS (7)
  - ACTIVITIES OF DAILY LIVING IMPAIRED [None]
  - ANXIETY [None]
  - ASTHENIA [None]
  - DRUG EFFECT DECREASED [None]
  - HYPERHIDROSIS [None]
  - MALAISE [None]
  - SOMNOLENCE [None]
